FAERS Safety Report 24634876 (Version 1)
Quarter: 2024Q4

REPORT INFORMATION
  Report Type: Spontaneous
  Country: US (occurrence: US)
  Receive Date: 20241119
  Receipt Date: 20241119
  Transmission Date: 20250115
  Serious: No
  Sender: AMNEAL
  Company Number: US-AMNEAL PHARMACEUTICALS-2023-AMRX-03531

PATIENT
  Age: 21 Year
  Sex: Female

DRUGS (2)
  1. ISOTRETINOIN [Suspect]
     Active Substance: ISOTRETINOIN
     Indication: Product used for unknown indication
     Dosage: 30 MILLIGRAM, 2 /DAY
     Route: 065
     Dates: start: 20230801
  2. ISOTRETINOIN [Suspect]
     Active Substance: ISOTRETINOIN
     Dosage: 40 MILLIGRAM, 1 /DAY
     Route: 065

REACTIONS (3)
  - Dry eye [Unknown]
  - Fatigue [Unknown]
  - Product use issue [Unknown]

NARRATIVE: CASE EVENT DATE: 20231001
